FAERS Safety Report 7091928-5 (Version None)
Quarter: 2010Q4

REPORT INFORMATION
  Report Type: 
  Country: None (occurrence: None)
  Receive Date: 20101109
  Receipt Date: 20101029
  Transmission Date: 20110411
  Serious: Yes (Hospitalization)
  Sender: FDA-Public Use
  Company Number: FR-EISAI INC.-E3810-04211-SPO-FR

PATIENT
  Sex: Male

DRUGS (6)
  1. PARIET (RABEPRAZOLE) [Suspect]
     Dosage: UNKNOWN
     Route: 048
     Dates: start: 20100922, end: 20100922
  2. ACTISOUFRE [Suspect]
     Route: 065
     Dates: start: 20100920, end: 20100922
  3. TUSSIDANE [Suspect]
     Route: 065
     Dates: start: 20100920, end: 20100922
  4. LASIX [Concomitant]
     Dates: start: 20100920
  5. VENTOLIN [Concomitant]
     Dates: start: 20100920
  6. CORTANCYL [Concomitant]
     Dates: start: 20100920

REACTIONS (2)
  - ANGIOEDEMA [None]
  - BRONCHOSPASM [None]
